FAERS Safety Report 6767868-5 (Version None)
Quarter: 2010Q2

REPORT INFORMATION
  Report Type: 
  Country: None (occurrence: None)
  Receive Date: 20100614
  Receipt Date: 20100604
  Transmission Date: 20101027
  Serious: Yes (Hospitalization, Other)
  Sender: FDA-Public Use
  Company Number: US-GENZYME-POMP-1000934

PATIENT
  Sex: Female

DRUGS (1)
  1. MYOZYME [Suspect]
     Indication: GLYCOGEN STORAGE DISEASE TYPE II
     Dosage: 1250 MG, Q2W
     Route: 042
     Dates: start: 20080111

REACTIONS (7)
  - ARRHYTHMIA [None]
  - BLOOD PRESSURE INCREASED [None]
  - CATHETER SITE PAIN [None]
  - CHEST PAIN [None]
  - INFECTION [None]
  - INFUSION SITE EXTRAVASATION [None]
  - VASCULAR ACCESS COMPLICATION [None]
